FAERS Safety Report 15880355 (Version 1)
Quarter: 2019Q1

REPORT INFORMATION
  Report Type: Spontaneous
  Country: GR (occurrence: GR)
  Receive Date: 20190128
  Receipt Date: 20190128
  Transmission Date: 20190417
  Serious: Yes (Hospitalization, Other)
  Sender: FDA-Public Use
  Company Number: GR-BAYER-2019-013338

PATIENT
  Age: 68 Year
  Sex: Male

DRUGS (9)
  1. IDARUBICIN HCL [Suspect]
     Active Substance: IDARUBICIN HYDROCHLORIDE
     Indication: ACUTE MYELOID LEUKAEMIA
  2. MICAFUNGIN. [Suspect]
     Active Substance: MICAFUNGIN SODIUM
     Indication: PROPHYLAXIS
  3. AMIKACIN. [Suspect]
     Active Substance: AMIKACIN
     Indication: FEBRILE NEUTROPENIA
  4. MEROPENEM. [Concomitant]
     Active Substance: MEROPENEM
  5. PIPERACILLIN/TAZOBACTAM [Concomitant]
     Active Substance: PIPERACILLIN SODIUM\TAZOBACTAM SODIUM
     Indication: FEBRILE NEUTROPENIA
  6. CIPROXINA (CIPROFLOXACIN) [Suspect]
     Active Substance: CIPROFLOXACIN
     Indication: PROPHYLAXIS
  7. TEICOPLANIN [Suspect]
     Active Substance: TEICOPLANIN
  8. CYTARABINE. [Suspect]
     Active Substance: CYTARABINE
     Indication: ACUTE MYELOID LEUKAEMIA
  9. VORICONAZOLE. [Suspect]
     Active Substance: VORICONAZOLE

REACTIONS (9)
  - Enterococcal infection [Recovered/Resolved]
  - Febrile neutropenia [Recovered/Resolved]
  - Systemic mycosis [Recovered/Resolved]
  - Pulmonary mass [Recovered/Resolved]
  - Staphylococcal infection [Recovered/Resolved]
  - Candida infection [None]
  - Hypoxia [Recovered/Resolved]
  - Renal disorder [Recovered/Resolved]
  - Infective aneurysm [Recovered/Resolved]
